FAERS Safety Report 19252002 (Version 1)
Quarter: 2021Q2

REPORT INFORMATION
  Report Type: Spontaneous
  Country: US (occurrence: US)
  Receive Date: 20210512
  Receipt Date: 20210512
  Transmission Date: 20210717
  Serious: Yes (Other)
  Sender: FDA-Public Use
  Company Number: None

PATIENT
  Age: 8 Year
  Sex: Male
  Weight: 24.75 kg

DRUGS (4)
  1. FLONASE [Concomitant]
     Active Substance: FLUTICASONE PROPIONATE
  2. CHILDREN CLARITIN ALLERGY [Concomitant]
     Active Substance: LORATADINE
  3. NATUROPATHIC VITAMINS [Concomitant]
  4. SINGULAIR [Suspect]
     Active Substance: MONTELUKAST SODIUM
     Indication: HYPERSENSITIVITY
     Dosage: ?          QUANTITY:1 TABLET(S);?
     Route: 048

REACTIONS (9)
  - Thinking abnormal [None]
  - Onychophagia [None]
  - Failure to thrive [None]
  - Feeding disorder [None]
  - Abnormal behaviour [None]
  - Disturbance in attention [None]
  - Anxiety [None]
  - Sleep terror [None]
  - Malnutrition [None]

NARRATIVE: CASE EVENT DATE: 20180110
